FAERS Safety Report 4294055-5 (Version None)
Quarter: 2004Q1

REPORT INFORMATION
  Report Type: 
  Country: None (occurrence: None)
  Receive Date: 20040210
  Receipt Date: 20040202
  Transmission Date: 20041129
  Serious: Yes (Other)
  Sender: FDA-Public Use
  Company Number: 2004197074US

PATIENT
  Age: 42 Year
  Sex: Male

DRUGS (3)
  1. CALAN [Suspect]
  2. CARDIZEM [Suspect]
  3. NIFEDIPINE [Suspect]

REACTIONS (11)
  - ACIDOSIS [None]
  - BLOOD CREATINE PHOSPHOKINASE INCREASED [None]
  - BLOOD CREATINE PHOSPHOKINASE MB INCREASED [None]
  - BRADYCARDIA [None]
  - BUNDLE BRANCH BLOCK LEFT [None]
  - HYPOTENSION [None]
  - MEDICATION ERROR [None]
  - OVERDOSE [None]
  - PULMONARY OEDEMA [None]
  - TROPONIN INCREASED [None]
  - VENTRICULAR HYPERKINESIA [None]
